FAERS Safety Report 7092979-7 (Version None)
Quarter: 2010Q4

REPORT INFORMATION
  Report Type: 
  Country: None (occurrence: None)
  Receive Date: 20101110
  Receipt Date: 20081218
  Transmission Date: 20110411
  Serious: No
  Sender: FDA-Public Use
  Company Number: US-KINGPHARMUSA00001-K200801433

PATIENT
  Sex: Female

DRUGS (3)
  1. BICILLIN L-A [Suspect]
     Indication: LYME DISEASE
     Dosage: UNK, TIW
     Dates: start: 20081201
  2. PLAQUENIL [Concomitant]
     Dosage: UNK
  3. BIAXIN [Concomitant]
     Dosage: UNK

REACTIONS (2)
  - VESSEL PERFORATION [None]
  - WRONG TECHNIQUE IN DRUG USAGE PROCESS [None]
